FAERS Safety Report 5064204-X (Version None)
Quarter: 2006Q3

REPORT INFORMATION
  Report Type: 
  Country: None (occurrence: None)
  Receive Date: 20060728
  Receipt Date: 20051111
  Transmission Date: 20061208
  Serious: No
  Sender: FDA-Public Use
  Company Number: US-GLAXOSMITHKLINE-A0581944A

PATIENT
  Age: 39 Year
  Sex: Male

DRUGS (3)
  1. ZANTAC [Suspect]
     Dosage: 150MG TWICE PER DAY
     Route: 048
     Dates: start: 20050901
  2. IBU [Concomitant]
     Route: 065
  3. ACETAMINOPHEN [Concomitant]

REACTIONS (1)
  - DRUG SCREEN FALSE POSITIVE [None]
